FAERS Safety Report 24848776 (Version 1)
Quarter: 2025Q1

REPORT INFORMATION
  Report Type: Spontaneous
  Country: KR (occurrence: KR)
  Receive Date: 20250116
  Receipt Date: 20250116
  Transmission Date: 20250409
  Serious: Yes (Death, Other)
  Sender: AMGEN
  Company Number: KR-AMGEN-KORSP2025003147

PATIENT

DRUGS (7)
  1. FILGRASTIM [Suspect]
     Active Substance: FILGRASTIM
     Indication: Tumour cell mobilisation
     Route: 065
  2. FILGRASTIM [Suspect]
     Active Substance: FILGRASTIM
     Indication: Prophylaxis
  3. DEXAMETHASONE [Concomitant]
     Active Substance: DEXAMETHASONE
     Dosage: 20 MILLIGRAM, QD ON DAY 1-4
  4. ASPARAGINASE [Concomitant]
     Active Substance: ASPARAGINASE
  5. IFOSFAMIDE [Concomitant]
     Active Substance: IFOSFAMIDE
  6. CARBOPLATIN [Concomitant]
     Active Substance: CARBOPLATIN
  7. ETOPOSIDE [Concomitant]
     Active Substance: ETOPOSIDE

REACTIONS (11)
  - Transplantation complication [Fatal]
  - Neutropenia [Unknown]
  - Febrile neutropenia [Unknown]
  - Hepatitis [Unknown]
  - Thrombosis [Unknown]
  - Acute graft versus host disease [Unknown]
  - Chronic graft versus host disease [Unknown]
  - Pancreatitis [Unknown]
  - Acute kidney injury [Unknown]
  - Thrombocytopenia [Unknown]
  - Anaemia [Unknown]
